FAERS Safety Report 15467214 (Version 1)
Quarter: 2018Q4

REPORT INFORMATION
  Report Type: Spontaneous
  Country: DE (occurrence: DE)
  Receive Date: 20181005
  Receipt Date: 20181005
  Transmission Date: 20190204
  Serious: Yes (Other)
  Sender: FDA-Public Use
  Company Number: DE-HIKMA PHARMACEUTICALS USA INC.-DE-H14001-18-07632

PATIENT
  Age: 53 Year
  Sex: Male

DRUGS (3)
  1. PAMIDRONATE DISODIUM. [Suspect]
     Active Substance: PAMIDRONATE DISODIUM
     Indication: PLASMA CELL MYELOMA
     Dosage: 60-90 MG EVERY 3 WEEKS ()
     Route: 065
  2. CORTICOSTEROIDS [Suspect]
     Active Substance: CORTICOSTEROID NOS
     Indication: PLASMA CELL MYELOMA
     Dosage: ()
  3. CHEMOTHERAPEUTICS NOS [Suspect]
     Active Substance: UNSPECIFIED INGREDIENT
     Indication: PLASMA CELL MYELOMA
     Dosage: ()

REACTIONS (7)
  - Actinomyces test positive [Unknown]
  - Impaired healing [Unknown]
  - Bone disorder [Unknown]
  - Bone lesion excision [Unknown]
  - Osteonecrosis of jaw [Unknown]
  - Stem cell transplant [Unknown]
  - Debridement [Unknown]
